FAERS Safety Report 5703577-9 (Version None)
Quarter: 2008Q2

REPORT INFORMATION
  Report Type: 
  Country: None (occurrence: None)
  Receive Date: 20080409
  Receipt Date: 20080327
  Transmission Date: 20081010
  Serious: Yes (Death)
  Sender: FDA-Public Use
  Company Number: MC200800162

PATIENT
  Age: 85 Year
  Sex: Male
  Weight: 93 kg

DRUGS (3)
  1. ANGIOMAX [Suspect]
     Indication: PERCUTANEOUS CORONARY INTERVENTION
     Dosage: 0.75 MG/KG, BOLUS, INTRAVENOUS
     Route: 042
     Dates: start: 20080314, end: 20080314
  2. ANGIOMAX [Suspect]
     Indication: PERCUTANEOUS CORONARY INTERVENTION
     Dosage: 0.75 MG/KG, BOLUS, INTRAVENOUS
     Route: 042
     Dates: start: 20080314
  3. COUMADIN [Concomitant]

REACTIONS (4)
  - ABNORMAL BEHAVIOUR [None]
  - BRAIN INJURY [None]
  - CEREBRAL HAEMORRHAGE [None]
  - INTERVENTRICULAR SEPTUM RUPTURE [None]
